FAERS Safety Report 4480596-4 (Version None)
Quarter: 2004Q4

REPORT INFORMATION
  Report Type: 
  Country: None (occurrence: None)
  Receive Date: 20041019
  Receipt Date: 20041006
  Transmission Date: 20050328
  Serious: Yes (Hospitalization)
  Sender: FDA-Public Use
  Company Number: 2004237677FR

PATIENT
  Age: 83 Year
  Sex: Male

DRUGS (1)
  1. SOMAVERT [Suspect]
     Indication: ACROMEGALY
     Dates: start: 20040701, end: 20041001

REACTIONS (2)
  - CONFUSIONAL STATE [None]
  - SEDATION [None]
